FAERS Safety Report 4885599-3 (Version None)
Quarter: 2005Q4

REPORT INFORMATION
  Report Type: 
  Country: None (occurrence: None)
  Receive Date: 20051220
  Receipt Date: 20050923
  Transmission Date: 20060501
  Serious: Yes (Other)
  Sender: FDA-Public Use
  Company Number: HQWYE686927SEP05

PATIENT
  Age: 52 Year
  Sex: Male

DRUGS (3)
  1. EFFEXOR XR [Suspect]
     Dosage: 150 MG 1X PER 1 DAY; SEE IMAGE
     Dates: start: 20050823, end: 20050901
  2. EFFEXOR XR [Suspect]
     Dosage: 150 MG 1X PER 1 DAY; SEE IMAGE
     Dates: start: 20050901
  3. ZOCOR [Concomitant]

REACTIONS (1)
  - SUICIDAL IDEATION [None]
